FAERS Safety Report 5755087-0 (Version None)
Quarter: 2008Q2

REPORT INFORMATION
  Report Type: 
  Country: None (occurrence: None)
  Receive Date: 20080602
  Receipt Date: 20071116
  Transmission Date: 20081010
  Serious: No
  Sender: FDA-Public Use
  Company Number: A0694957A

PATIENT
  Age: 40 Year
  Sex: Female

DRUGS (6)
  1. AUGMENTIN '125' [Suspect]
     Indication: SINUSITIS
     Dosage: 1000MG TWICE PER DAY
     Route: 048
     Dates: start: 20071105, end: 20071110
  2. EFFEXOR [Concomitant]
  3. FENTANYL-100 [Concomitant]
  4. TRAMADOL HCL [Concomitant]
  5. MELOXICAM [Concomitant]
  6. EXCEDRIN (MIGRAINE) [Concomitant]

REACTIONS (6)
  - AGITATION [None]
  - CHILLS [None]
  - CONFUSIONAL STATE [None]
  - DYSARTHRIA [None]
  - HEADACHE [None]
  - PYREXIA [None]
